FAERS Safety Report 7784283-6 (Version None)
Quarter: 2011Q3

REPORT INFORMATION
  Report Type: 
  Country: None (occurrence: None)
  Receive Date: 20110928
  Receipt Date: 20110914
  Transmission Date: 20111222
  Serious: Yes (Other)
  Sender: FDA-Public Use
  Company Number: PHHY2011JP82631

PATIENT
  Age: 69 Year
  Sex: Female

DRUGS (6)
  1. METOPROLOL TARTRATE [Suspect]
     Indication: HYPERTENSION
     Dosage: 80 MG, UNK
     Route: 048
  2. AZELNIDIPINE [Concomitant]
     Indication: HYPERTENSION
     Dosage: 8 MG, UNK
     Route: 048
  3. IMIDAPRIL HYDROCHLORIDE [Concomitant]
     Indication: HYPERTENSION
     Dosage: 5 MG, UNK
     Route: 048
  4. TRIAMTERENE [Concomitant]
     Indication: HYPERTENSION
     Dosage: 100 MG, UNK
     Route: 048
  5. TRIAMTERENE [Concomitant]
     Dosage: 50 MG, UNK
     Route: 048
  6. VALSARTAN [Suspect]
     Indication: HYPERTENSION
     Dosage: 80 MG, UNK
     Route: 048

REACTIONS (6)
  - LIDDLE'S SYNDROME [None]
  - HYPERTENSION [None]
  - METABOLIC ALKALOSIS [None]
  - HYPOKALAEMIA [None]
  - HYPOALDOSTERONISM [None]
  - BLOOD PRESSURE DECREASED [None]
